FAERS Safety Report 11603160 (Version 1)
Quarter: 2015Q4

REPORT INFORMATION
  Report Type: Spontaneous
  Country: US (occurrence: US)
  Receive Date: 20151006
  Receipt Date: 20151006
  Transmission Date: 20160304
  Serious: No
  Sender: FDA-Public Use
  Company Number: US-AMGEN-USASP2014083653

PATIENT
  Age: 57 Year
  Sex: Female

DRUGS (1)
  1. PROLIA [Suspect]
     Active Substance: DENOSUMAB
     Indication: OSTEOPOROSIS POSTMENOPAUSAL
     Dosage: UNK
     Route: 065

REACTIONS (7)
  - Visual impairment [Unknown]
  - Paraesthesia [Unknown]
  - Hyperhidrosis [Unknown]
  - Vomiting [Unknown]
  - Chills [Unknown]
  - Hyperventilation [Unknown]
  - Nausea [Unknown]

NARRATIVE: CASE EVENT DATE: 20141028
